FAERS Safety Report 7971069-2 (Version None)
Quarter: 2011Q4

REPORT INFORMATION
  Report Type: 
  Country: None (occurrence: None)
  Receive Date: 20111212
  Receipt Date: 20111201
  Transmission Date: 20120403
  Serious: Yes (Death, Hospitalization, Other)
  Sender: FDA-Public Use
  Company Number: JP-GENZYME-THYM-1002952

PATIENT
  Age: 15 Year
  Sex: Female
  Weight: 43 kg

DRUGS (24)
  1. GRANISETRON HCL [Concomitant]
     Indication: PROPHYLAXIS OF NAUSEA AND VOMITING
     Dosage: UNK
     Route: 065
     Dates: start: 20101116, end: 20101122
  2. MESNA [Concomitant]
     Indication: PROPHYLAXIS
     Dosage: UNK
     Route: 065
     Dates: start: 20101121, end: 20101122
  3. LEUCOVORIN CALCIUM [Concomitant]
     Indication: PROPHYLAXIS
     Dosage: UNK
     Route: 065
     Dates: start: 20110115, end: 20110119
  4. PLATELETS [Concomitant]
     Indication: PANCYTOPENIA
  5. ALLOPURINOL [Concomitant]
     Indication: PROPHYLAXIS
     Dosage: UNK
     Route: 065
     Dates: start: 20101001, end: 20101128
  6. LANSOPRAZOLE [Concomitant]
     Indication: PROPHYLAXIS AGAINST GASTROINTESTINAL ULCER
     Dosage: UNK
     Route: 065
     Dates: start: 20101019, end: 20101126
  7. ACYCLOVIR [Concomitant]
     Indication: ANTIVIRAL PROPHYLAXIS
     Dosage: UNK
     Route: 065
     Dates: start: 20101127, end: 20101130
  8. METHOTREXATE [Concomitant]
     Indication: NON-HODGKIN'S LYMPHOMA RECURRENT
     Dosage: UNK
     Route: 065
     Dates: start: 20110114, end: 20110114
  9. HUMAN RED BLOOD CELLS [Concomitant]
     Indication: PANCYTOPENIA
  10. PLATELETS [Concomitant]
     Indication: NON-HODGKIN'S LYMPHOMA
     Dosage: UNK
     Route: 065
     Dates: start: 20101011, end: 20110206
  11. THYMOGLOBULIN [Suspect]
     Indication: BONE MARROW CONDITIONING REGIMEN
     Dosage: 50 MG, QD
     Route: 042
     Dates: start: 20101122, end: 20101123
  12. GRANISETRON HCL [Concomitant]
     Dosage: UNK
     Route: 065
     Dates: start: 20110114, end: 20110114
  13. METHYLPREDNISOLONE SODIUM SUCCINATE [Concomitant]
     Indication: GRAFT VERSUS HOST DISEASE
     Dosage: UNK
     Route: 065
     Dates: start: 20101207, end: 20101211
  14. TACROLIMUS [Concomitant]
     Indication: PROPHYLAXIS AGAINST GRAFT VERSUS HOST DISEASE
     Dosage: UNK
     Route: 065
     Dates: start: 20101123, end: 20101222
  15. ACYCLOVIR [Concomitant]
     Dosage: UNK
     Route: 065
     Dates: start: 20101116, end: 20101126
  16. METHYLPREDNISOLONE SODIUM SUCCINATE [Concomitant]
     Indication: PREMEDICATION
     Dosage: UNK
     Route: 065
     Dates: start: 20101122, end: 20101123
  17. TACROLIMUS [Concomitant]
     Dosage: UNK
     Route: 065
     Dates: start: 20101221, end: 20101226
  18. METHOTREXATE [Concomitant]
     Indication: PROPHYLAXIS AGAINST GRAFT VERSUS HOST DISEASE
     Dosage: UNK
     Route: 065
     Dates: start: 20101125, end: 20101130
  19. OMEPRAZOLE [Concomitant]
     Indication: PROPHYLAXIS AGAINST GASTROINTESTINAL ULCER
     Dosage: UNK
     Route: 065
     Dates: start: 20101127, end: 20101212
  20. MICAFUNGIN SODIUM [Concomitant]
     Indication: ANTIFUNGAL PROPHYLAXIS
     Dosage: UNK
     Route: 065
     Dates: start: 20101201, end: 20101228
  21. HUMAN RED BLOOD CELLS [Concomitant]
     Indication: NON-HODGKIN'S LYMPHOMA
     Dosage: UNK
     Route: 065
     Dates: start: 20100922, end: 20110206
  22. CYCLOPHOSPHAMIDE [Concomitant]
     Indication: BONE MARROW CONDITIONING REGIMEN
     Dosage: UNK
     Route: 065
     Dates: start: 20101121, end: 20101122
  23. FLUCONAZOLE [Concomitant]
     Indication: ANTIFUNGAL PROPHYLAXIS
     Dosage: UNK
     Route: 065
     Dates: start: 20101127, end: 20101130
  24. FLUCONAZOLE [Concomitant]
     Indication: ANTIFUNGAL PROPHYLAXIS
     Dosage: UNK
     Route: 065
     Dates: start: 20101022, end: 20101127

REACTIONS (6)
  - ACUTE GRAFT VERSUS HOST DISEASE IN SKIN [None]
  - NEUTROPENIA [None]
  - NON-HODGKIN'S LYMPHOMA RECURRENT [None]
  - CYTOMEGALOVIRUS INFECTION [None]
  - FEBRILE NEUTROPENIA [None]
  - STAPHYLOCOCCAL BACTERAEMIA [None]
